FAERS Safety Report 15678127 (Version 1)
Quarter: 2018Q4

REPORT INFORMATION
  Report Type: Other
  Country: None (occurrence: US)
  Receive Date: 20181201
  Receipt Date: 20181201
  Transmission Date: 20190205
  Serious: Yes (Life-Threatening)
  Sender: FDA-Public Use
  Company Number: US-STANDARD HOMEOPATHIC COMPANY-2059503

PATIENT
  Age: 6 Year
  Sex: Female

DRUGS (1)
  1. NIGHTTIME COLD N COUGH 4 KIDS [Suspect]
     Active Substance: HOMEOPATHICS
     Route: 048
     Dates: start: 20181119, end: 20181119

REACTIONS (1)
  - Hypersensitivity [Recovered/Resolved]

NARRATIVE: CASE EVENT DATE: 20181119
